FAERS Safety Report 4442871-9 (Version None)
Quarter: 2004Q3

REPORT INFORMATION
  Report Type: 
  Country: None (occurrence: None)
  Receive Date: 20040903
  Receipt Date: 20040525
  Transmission Date: 20050211
  Serious: Yes (Other)
  Sender: FDA-Public Use
  Company Number: 2004UW10971

PATIENT
  Age: 44 Year
  Sex: Male

DRUGS (4)
  1. CRESTOR [Suspect]
     Dosage: 10 MG PO
     Route: 048
  2. ACCUPRIL [Concomitant]
  3. ASPIRIN [Concomitant]
  4. VITAMIN E [Concomitant]

REACTIONS (5)
  - ABDOMINAL PAIN [None]
  - DEPRESSION [None]
  - DIZZINESS [None]
  - MOOD ALTERED [None]
  - MYALGIA [None]
